FAERS Safety Report 9468954 (Version 2)
Quarter: 2013Q3

REPORT INFORMATION
  Report Type: Spontaneous
  Country: US (occurrence: US)
  Receive Date: 20130821
  Receipt Date: 20130821
  Transmission Date: 20140515
  Serious: Yes (Other)
  Sender: FDA-Public Use
  Company Number: US-ALLERGAN-1308620US

PATIENT
  Age: 48 Year
  Sex: Female

DRUGS (5)
  1. BOTOX [Suspect]
     Indication: MIGRAINE
     Dosage: 200 UNITS, SINGLE
     Route: 030
     Dates: start: 20130312, end: 20130312
  2. HYDROCODONE [Concomitant]
     Indication: POST-TRAUMATIC PAIN
     Dosage: UNK UNK, PRN
  3. AMITRIPTYLINE [Concomitant]
     Indication: HEADACHE
     Dosage: UNK UNK, QHS
     Route: 048
  4. IMITREX                            /01044801/ [Concomitant]
     Indication: MIGRAINE
     Dosage: UNK UNK, PRN
  5. LAMICTAL [Concomitant]
     Indication: MIGRAINE
     Dosage: 200 MG, BID
     Route: 048

REACTIONS (4)
  - Pharyngeal oedema [Recovered/Resolved]
  - Swollen tongue [Recovered/Resolved]
  - Injection site rash [Recovered/Resolved]
  - Off label use [Unknown]
